FAERS Safety Report 9052375 (Version 2)
Quarter: 2013Q1

REPORT INFORMATION
  Report Type: Report from Study
  Country: IT (occurrence: IT)
  Receive Date: 20130207
  Receipt Date: 20130227
  Transmission Date: 20140127
  Serious: Yes (Hospitalization)
  Sender: FDA-Public Use
  Company Number: IT-JNJFOC-20130113734

PATIENT
  Age: 13 None
  Sex: Female
  Weight: 45 kg

DRUGS (2)
  1. REMICADE [Suspect]
     Indication: CROHN^S DISEASE
     Route: 042
     Dates: start: 20120130, end: 20120515
  2. HUMIRA [Concomitant]
     Dates: start: 20120601

REACTIONS (1)
  - Abdominal pain [Recovered/Resolved]
